FAERS Safety Report 17760115 (Version 3)
Quarter: 2025Q2

REPORT INFORMATION
  Report Type: Spontaneous
  Country: EE (occurrence: EE)
  Receive Date: 20200508
  Receipt Date: 20250519
  Transmission Date: 20250717
  Serious: Yes (Other)
  Sender: ACCORD
  Company Number: None

PATIENT
  Age: 30 Year
  Sex: Female

DRUGS (7)
  1. MONTELUKAST [Suspect]
     Active Substance: MONTELUKAST
     Indication: Urticaria
     Dosage: 10 MG, 1D
     Dates: start: 201802
  2. ACETAMINOPHEN [Suspect]
     Active Substance: ACETAMINOPHEN
     Indication: Arthralgia
  3. CYCLOSPORINE [Suspect]
     Active Substance: CYCLOSPORINE
     Indication: Rash
     Dosage: 100 MG, 1D
  4. RUPATADINE FUMARATE [Suspect]
     Active Substance: RUPATADINE FUMARATE
     Indication: Urticaria
     Dosage: UNK, 1D
     Dates: start: 201802
  5. DESLORATADINE [Suspect]
     Active Substance: DESLORATADINE
     Indication: Rash
     Dosage: 2 DOSAGE FORMS DAILY
  6. RUPATADINE FUMARATE [Suspect]
     Active Substance: RUPATADINE FUMARATE
     Indication: Angioedema
     Dosage: 1 DF, 1D (1 TABLET PER DAY)
  7. MONTELUKAST [Suspect]
     Active Substance: MONTELUKAST
     Indication: Angioedema

REACTIONS (11)
  - Condition aggravated [Unknown]
  - Abortion spontaneous [Unknown]
  - Vomiting [Recovered/Resolved]
  - Angioedema [Unknown]
  - Sensation of foreign body [Unknown]
  - Blood immunoglobulin E increased [Unknown]
  - Drug ineffective [Unknown]
  - Rash [Unknown]
  - Urticaria [Unknown]
  - Rash macular [Unknown]
  - Abdominal pain [Recovered/Resolved]

NARRATIVE: CASE EVENT DATE: 20180101
